FAERS Safety Report 4691554-9 (Version None)
Quarter: 2005Q2

REPORT INFORMATION
  Report Type: 
  Country: None (occurrence: None)
  Receive Date: 20050608
  Receipt Date: 20040629
  Transmission Date: 20051028
  Serious: Yes (Other)
  Sender: FDA-Public Use
  Company Number: 351458

PATIENT

DRUGS (2)
  1. ACCUTANE [Suspect]
     Indication: ACNE CYSTIC
     Dosage: 40 MG DAILY ORAL
     Route: 048
     Dates: start: 19990403, end: 19990815
  2. ORTHO TRI-CYCLEN [Concomitant]

REACTIONS (2)
  - LIVE BIRTH [None]
  - NO ADVERSE EFFECT [None]
